FAERS Safety Report 21239928 (Version 1)
Quarter: 2022Q3

REPORT INFORMATION
  Report Type: Spontaneous
  Country: US (occurrence: US)
  Receive Date: 20220822
  Receipt Date: 20220822
  Transmission Date: 20221026
  Serious: Yes (Death, Other)
  Sender: FDA-Public Use
  Company Number: US-SA-SAC20220820000012

PATIENT
  Age: 47 Year

DRUGS (1)
  1. ZANTAC [Suspect]
     Active Substance: RANITIDINE HYDROCHLORIDE
     Indication: Dyspepsia
     Dosage: OTHER; FREQUENCY: QD
     Route: 065
     Dates: start: 201201, end: 201712

REACTIONS (1)
  - Gastric cancer stage III [Fatal]

NARRATIVE: CASE EVENT DATE: 20160101
